FAERS Safety Report 19502375 (Version 1)
Quarter: 2021Q3

REPORT INFORMATION
  Report Type: Spontaneous
  Country: US (occurrence: US)
  Receive Date: 20210707
  Receipt Date: 20210707
  Transmission Date: 20211014
  Serious: Yes (Hospitalization)
  Sender: FDA-Public Use
  Company Number: US-FRESENIUS KABI-FK202106899

PATIENT
  Age: 55 Year
  Sex: Female

DRUGS (7)
  1. DEXAMETHASONE. [Suspect]
     Active Substance: DEXAMETHASONE
     Indication: PRODUCT USED FOR UNKNOWN INDICATION
     Dosage: DAILY FOR 4 DAYS ON DAYS 1?4 AND DAYS 11?14 (APPROXIMATE)
     Route: 042
  2. INOTUZUMAB OZOGAMICIN [Suspect]
     Active Substance: INOTUZUMAB OZOGAMICIN
     Indication: ACUTE LYMPHOCYTIC LEUKAEMIA
     Dosage: OVER 1 HOUR ON DAYS 2 AND 8 OF CYCLES 1 AND 3 (APPROXIMATE)
     Route: 042
     Dates: start: 20210428
  3. PEGFILGRASTIM [Suspect]
     Active Substance: PEGFILGRASTIM
     Indication: PRODUCT USED FOR UNKNOWN INDICATION
     Dosage: 6 MG SUBQ (OR FILGRASTIM 5?10 MCG/KG DAILY) ON DAY 4 UNTIL RECOVERY OF GRANULOCYTE COUNT
     Route: 058
  4. MESNA (MANUFACTURER UNKNOWN) [Suspect]
     Active Substance: MESNA
     Indication: PRODUCT USED FOR UNKNOWN INDICATION
     Dosage: OVER 24 HOURS FOR 3 DAYS ON DAYS 1?3
     Route: 042
  5. RITUXIMAB. [Suspect]
     Active Substance: RITUXIMAB
     Indication: PRODUCT USED FOR UNKNOWN INDICATION
     Dosage: DAY 2 AND DAY 8 OF CYCLES 1 AND 3
     Route: 042
  6. CYCLOPHOSPHAMIDE. [Suspect]
     Active Substance: CYCLOPHOSPHAMIDE
     Indication: PRODUCT USED FOR UNKNOWN INDICATION
     Dosage: OVER 3 HOURS TWICE A DAY ON DAYS 1?3
     Route: 042
  7. VINCRISTINE SULFATE. [Suspect]
     Active Substance: VINCRISTINE SULFATE
     Indication: PRODUCT USED FOR UNKNOWN INDICATION
     Dosage: 071484 ?2 MG, CYCLIC (DAY 1 AND DAY 8 (APPROXIMATE)
     Route: 042

REACTIONS (1)
  - Constipation [Recovered/Resolved]

NARRATIVE: CASE EVENT DATE: 20210521
